FAERS Safety Report 6610826-1 (Version None)
Quarter: 2010Q1

REPORT INFORMATION
  Report Type: 
  Country: None (occurrence: None)
  Receive Date: 20100302
  Receipt Date: 20100222
  Transmission Date: 20100710
  Serious: Yes (Hospitalization, Other)
  Sender: FDA-Public Use
  Company Number: CA-AMGEN-QUU394832

PATIENT
  Sex: Female

DRUGS (3)
  1. NEULASTA [Suspect]
     Indication: CHEMOTHERAPY
     Route: 065
     Dates: start: 20100212, end: 20100212
  2. TAXOTERE [Suspect]
     Dates: start: 20100210, end: 20100210
  3. CYCLOPHOSPHAMIDE [Suspect]
     Dates: start: 20100210, end: 20100210

REACTIONS (2)
  - BONE MARROW FAILURE [None]
  - FEBRILE NEUTROPENIA [None]
